FAERS Safety Report 4698762-1 (Version None)
Quarter: 2005Q2

REPORT INFORMATION
  Report Type: 
  Country: None (occurrence: None)
  Receive Date: 20050621
  Receipt Date: 20050606
  Transmission Date: 20051028
  Serious: Yes (Hospitalization)
  Sender: FDA-Public Use
  Company Number: 05-0067NI

PATIENT
  Age: 72 Year
  Sex: Female

DRUGS (6)
  1. NITROLINGUAL PUMP SPRAY (NITROGLYGERIN LINGUAL SPRAY) [Suspect]
     Indication: CHEST PAIN
     Dosage: 0.8 MG, SUBLINGUAL
     Route: 060
     Dates: start: 20050418
  2. LANSOPRAZOLE [Concomitant]
  3. FUROSEMIDE [Concomitant]
  4. ASPIRIN [Concomitant]
  5. LISINOPRIL [Concomitant]
  6. SIMIVASTATIN (SIMVASTATIN) [Concomitant]

REACTIONS (4)
  - DIZZINESS [None]
  - HYPERHIDROSIS [None]
  - HYPOTENSION [None]
  - SYNCOPE [None]
